FAERS Safety Report 17102996 (Version 1)
Quarter: 2019Q4

REPORT INFORMATION
  Report Type: Spontaneous
  Country: US (occurrence: US)
  Receive Date: 20191202
  Receipt Date: 20191202
  Transmission Date: 20200122
  Serious: Yes (Life-Threatening, Disabling)
  Sender: FDA-Public Use
  Company Number: None

PATIENT
  Age: 73 Year
  Sex: Male

DRUGS (1)
  1. ALTEPLASE. [Suspect]
     Active Substance: ALTEPLASE
     Indication: ISCHAEMIC STROKE
     Dosage: ?          OTHER FREQUENCY:ONCE;?
     Route: 041
     Dates: start: 20191126, end: 20191126

REACTIONS (5)
  - Vomiting [None]
  - Haemorrhagic transformation stroke [None]
  - Nausea [None]
  - Hemiplegia [None]
  - Brain stem syndrome [None]

NARRATIVE: CASE EVENT DATE: 20191126
